FAERS Safety Report 7558056-3 (Version None)
Quarter: 2011Q2

REPORT INFORMATION
  Report Type: 
  Country: None (occurrence: None)
  Receive Date: 20110620
  Receipt Date: 20110617
  Transmission Date: 20111010
  Serious: Yes (Hospitalization)
  Sender: FDA-Public Use
  Company Number: US-UCBSA-035633

PATIENT
  Sex: Female
  Weight: 76 kg

DRUGS (7)
  1. CIMZIA [Suspect]
     Indication: RHEUMATOID ARTHRITIS
     Route: 058
     Dates: start: 20100601
  2. METFORMIN HCL [Concomitant]
     Indication: DIABETES MELLITUS
     Dates: start: 20080101
  3. ONGLYZA [Concomitant]
     Indication: DIABETES MELLITUS
     Dates: start: 20090101
  4. SINGULAIR [Concomitant]
     Indication: CHRONIC OBSTRUCTIVE PULMONARY DISEASE
  5. VICODIN [Concomitant]
     Indication: RHEUMATOID ARTHRITIS
     Dates: start: 20000101
  6. NEURONTIN [Concomitant]
     Indication: NEUROPATHY PERIPHERAL
     Dates: start: 20080101
  7. METHOTREXATE [Concomitant]
     Indication: RHEUMATOID ARTHRITIS
     Dates: start: 19980101

REACTIONS (2)
  - PNEUMONIA [None]
  - HYPERHIDROSIS [None]
